FAERS Safety Report 23971058 (Version 1)
Quarter: 2024Q2

REPORT INFORMATION
  Report Type: Spontaneous
  Country: US (occurrence: US)
  Receive Date: 20240613
  Receipt Date: 20240613
  Transmission Date: 20240716
  Serious: Yes (Other)
  Sender: FDA-Public Use
  Company Number: US-SUN PHARMACEUTICAL INDUSTRIES LTD-2024R1-449362

PATIENT
  Age: 73 Year
  Sex: Female

DRUGS (6)
  1. HYDROXYCHLOROQUINE [Suspect]
     Active Substance: HYDROXYCHLOROQUINE
     Indication: Lichen planopilaris
     Dosage: 200 MILLIGRAM, DAILY
     Route: 048
  2. KENALOG [Concomitant]
     Active Substance: TRIAMCINOLONE ACETONIDE
     Indication: Lichen planopilaris
     Route: 026
  3. PREDNISONE [Concomitant]
     Active Substance: PREDNISONE
     Indication: Lichen planopilaris
     Dosage: 40 MILLIGRAM
     Route: 048
  4. PREDNISONE [Concomitant]
     Active Substance: PREDNISONE
     Dosage: 20 MILLIGRAM
     Route: 048
  5. TACROLIMUS [Concomitant]
     Active Substance: TACROLIMUS
     Indication: Lichen planopilaris
     Dosage: UNK, BID
     Route: 061
  6. FINASTERIDE [Concomitant]
     Active Substance: FINASTERIDE
     Indication: Lichen planopilaris
     Route: 065

REACTIONS (1)
  - Thrombocytopenic purpura [Unknown]
